FAERS Safety Report 6827335-7 (Version None)
Quarter: 2010Q3

REPORT INFORMATION
  Report Type: 
  Country: None (occurrence: None)
  Receive Date: 20100709
  Receipt Date: 20070108
  Transmission Date: 20110219
  Serious: No
  Sender: FDA-Public Use
  Company Number: US-PFIZER INC-2007003312

PATIENT
  Sex: Female
  Weight: 61.23 kg

DRUGS (6)
  1. CHANTIX [Suspect]
     Indication: SMOKING CESSATION THERAPY
     Route: 048
     Dates: start: 20070102
  2. PREMARIN [Concomitant]
     Route: 048
  3. CALCIUM CARBONATE [Concomitant]
     Route: 048
  4. FOLIC ACID [Concomitant]
     Route: 048
  5. ACETYLSALICYLIC ACID [Concomitant]
     Route: 048
  6. VITAMIN B12 FOR INJECTION [Concomitant]
     Route: 030

REACTIONS (7)
  - ABNORMAL DREAMS [None]
  - BACK PAIN [None]
  - DRUG INEFFECTIVE [None]
  - INCREASED APPETITE [None]
  - NAUSEA [None]
  - NOCTURIA [None]
  - POLLAKIURIA [None]
